FAERS Safety Report 4869786-6 (Version None)
Quarter: 2005Q4

REPORT INFORMATION
  Report Type: 
  Country: None (occurrence: None)
  Receive Date: 20051223
  Receipt Date: 20051213
  Transmission Date: 20060501
  Serious: Yes (Hospitalization)
  Sender: FDA-Public Use
  Company Number: 200512137BWH

PATIENT
  Age: 63 Year
  Sex: Male
  Weight: 67.1324 kg

DRUGS (6)
  1. LEVITRA [Suspect]
     Dosage: SEE IMAGE
     Route: 048
  2. LEVITRA [Suspect]
     Dosage: SEE IMAGE
     Route: 048
     Dates: start: 20051201
  3. GLEEVEC [Concomitant]
  4. FLOVENT [Concomitant]
  5. CARDURA [Concomitant]
  6. WARFARIN [Concomitant]

REACTIONS (13)
  - ASTHENIA [None]
  - ATRIAL FLUTTER [None]
  - BURNING SENSATION [None]
  - DRUG INEFFECTIVE [None]
  - DYSPNOEA [None]
  - ERECTILE DYSFUNCTION [None]
  - FATIGUE [None]
  - FEELING ABNORMAL [None]
  - FEELING COLD [None]
  - HEART RATE INCREASED [None]
  - LOWER RESPIRATORY TRACT INFECTION [None]
  - MUSCLE STRAIN [None]
  - PALPITATIONS [None]
